FAERS Safety Report 7035223-9 (Version None)
Quarter: 2010Q4

REPORT INFORMATION
  Report Type: 
  Country: None (occurrence: None)
  Receive Date: 20101008
  Receipt Date: 20100928
  Transmission Date: 20110411
  Serious: Yes (Other)
  Sender: FDA-Public Use
  Company Number: US-JNJFOC-20101000218

PATIENT
  Sex: Female
  Weight: 73.94 kg

DRUGS (6)
  1. INFLIXIMAB, RECOMBINANT [Suspect]
     Indication: CROHN'S DISEASE
     Dosage: ADMINISTERED AT APPROXIMATELY EVERY 8 -10 WEEKS
     Route: 042
  2. INFLIXIMAB, RECOMBINANT [Suspect]
     Dosage: ADMINISTERED AT APPROXIMATELY EVERY 8 -10 WEEKS
     Route: 042
  3. INFLIXIMAB, RECOMBINANT [Suspect]
     Dosage: 4 INFUSIONS ADMINISTERED PRIOR TO TREAT REGISTRATION
     Route: 042
  4. INFLIXIMAB, RECOMBINANT [Suspect]
     Route: 042
  5. INFLIXIMAB, RECOMBINANT [Suspect]
     Dosage: ADMINISTERED AT APPROXIMATELY EVERY 6-8 WEEKS
     Route: 042
  6. HUMIRA [Concomitant]
     Indication: CROHN'S DISEASE

REACTIONS (1)
  - BASAL CELL CARCINOMA [None]
